FAERS Safety Report 6677973-X (Version None)
Quarter: 2010Q2

REPORT INFORMATION
  Report Type: 
  Country: None (occurrence: None)
  Receive Date: 20100412
  Receipt Date: 20100331
  Transmission Date: 20101027
  Serious: Yes (Hospitalization, Other)
  Sender: FDA-Public Use
  Company Number: CH-ELI_LILLY_AND_COMPANY-CH201004000055

PATIENT

DRUGS (6)
  1. ZYPREXA [Suspect]
     Dosage: 10 MG, DAILY (1/D)
     Route: 064
     Dates: start: 20080901, end: 20090514
  2. REMERON [Concomitant]
     Indication: BIPOLAR DISORDER
     Dosage: 45 MG, DAILY (1/D)
     Route: 064
     Dates: start: 20080101, end: 20090514
  3. LITHIOFOR [Concomitant]
     Dosage: 330 MG, DAILY (1/D)
     Route: 064
     Dates: start: 20080101, end: 20090514
  4. SERESTA [Concomitant]
     Dosage: 15 MG, DAILY (1/D)
     Route: 064
     Dates: end: 20090514
  5. ZOLPIDEM [Concomitant]
     Dosage: 70 MG, DAILY (1/D)
     Route: 064
     Dates: start: 20080101, end: 20090514
  6. QUETIAPINE [Concomitant]
     Dosage: 300 MG, 2/D
     Route: 064
     Dates: start: 20080101, end: 20090514

REACTIONS (4)
  - DRUG EXPOSURE DURING PREGNANCY [None]
  - DRUG INTERACTION [None]
  - DRUG WITHDRAWAL SYNDROME NEONATAL [None]
  - NEONATAL RESPIRATORY DISTRESS SYNDROME [None]
